FAERS Safety Report 5034996-4 (Version None)
Quarter: 2006Q2

REPORT INFORMATION
  Report Type: 
  Country: None (occurrence: None)
  Receive Date: 20060627
  Receipt Date: 20060619
  Transmission Date: 20061013
  Serious: Yes (Other)
  Sender: FDA-Public Use
  Company Number: GB-JNJFOC-20060602670

PATIENT
  Age: 44 Year
  Sex: Male

DRUGS (5)
  1. RISPERDAL [Suspect]
     Indication: SCHIZOPHRENIA
     Route: 048
  2. RISPERDAL [Suspect]
     Indication: PARANOIA
     Route: 048
  3. RISPERDAL [Suspect]
     Indication: ANXIETY
     Dosage: 2MG AM AND 6MG PM
     Route: 048
  4. SERTRALINE [Concomitant]
     Indication: DEPRESSION
  5. PROPRANOLOL [Concomitant]
     Indication: ANXIETY

REACTIONS (1)
  - ATRIOVENTRICULAR BLOCK FIRST DEGREE [None]
